FAERS Safety Report 13984457 (Version 1)
Quarter: 2017Q3

REPORT INFORMATION
  Report Type: Report from Study
  Country: US (occurrence: US)
  Receive Date: 20170918
  Receipt Date: 20170918
  Transmission Date: 20171128
  Serious: No
  Sender: FDA-Public Use
  Company Number: US-STASON PHARMACEUTICALS, INC.-2026699

PATIENT
  Age: 59 Year
  Sex: Male

DRUGS (1)
  1. MERCAPTOPURINE. [Suspect]
     Active Substance: MERCAPTOPURINE
     Dates: start: 20091204, end: 20101130

REACTIONS (1)
  - Hepatitis cholestatic [None]
